FAERS Safety Report 5087070-5 (Version None)
Quarter: 2006Q3

REPORT INFORMATION
  Report Type: 
  Country: None (occurrence: None)
  Receive Date: 20060821
  Receipt Date: 20060811
  Transmission Date: 20061208
  Serious: Yes (Other)
  Sender: FDA-Public Use
  Company Number: 2006098371

PATIENT
  Sex: Female
  Weight: 2.7216 kg

DRUGS (2)
  1. VIRACEPT [Suspect]
     Indication: HIV INFECTION
     Dosage: 2500 MG (DAILY), ORAL
     Route: 048
     Dates: start: 20051213
  2. COMBIVIR [Suspect]
     Indication: HIV INFECTION
     Dosage: 2 TABLETS (DAILY), ORAL
     Route: 048
     Dates: start: 20051213

REACTIONS (3)
  - CONGENITAL ADRENAL GLAND HYPOPLASIA [None]
  - DRUG EXPOSURE DURING PREGNANCY [None]
  - EBSTEIN'S ANOMALY [None]
